FAERS Safety Report 7821658-0 (Version None)
Quarter: 2011Q4

REPORT INFORMATION
  Report Type: 
  Country: None (occurrence: None)
  Receive Date: 20111018
  Receipt Date: 20111005
  Transmission Date: 20120403
  Serious: Yes (Hospitalization, Other)
  Sender: FDA-Public Use
  Company Number: US-BAYER-2011-052738

PATIENT
  Age: 31 Year
  Sex: Female
  Weight: 122.45 kg

DRUGS (13)
  1. CLARITIN [Concomitant]
     Dosage: 10 MG, QD
     Dates: start: 20090203
  2. MULTI-VITAMIN [Concomitant]
     Indication: BLOOD IRON ABNORMAL
     Dosage: UNK UNK, QD
     Route: 048
     Dates: start: 20090301
  3. PROTONIX [Concomitant]
     Dosage: 40 MG, PRN
     Dates: start: 20080101
  4. ASACOL [Concomitant]
     Dosage: 400 MG, QID
  5. FLAGYL [Concomitant]
     Dosage: 500 MG, BID
     Dates: start: 20090904
  6. XANAX [Concomitant]
     Dosage: 1 MG, PRN
     Dates: start: 20050101, end: 20100101
  7. DROSPIRENONE AND ETHINYL ESTRADIOL [Suspect]
     Indication: CONTRACEPTION
     Dosage: UNK
     Dates: start: 20080101, end: 20090101
  8. IMURAN [Concomitant]
     Dosage: 150 MG, QD
     Dates: start: 20090203
  9. LISINOPRIL [Concomitant]
     Dosage: 10 MG, QD
     Dates: start: 20050101, end: 20100101
  10. PREDNISONE [Concomitant]
     Dosage: 20 MG, TID
     Dates: start: 20090904
  11. YASMIN [Suspect]
     Indication: CONTRACEPTION
     Dosage: UNK
     Dates: start: 20080101, end: 20090101
  12. SOMA [Concomitant]
     Dosage: 350 MG, PRN
     Dates: start: 20050101, end: 20100101
  13. CIPROFLOXACIN [Concomitant]
     Dosage: 500 MG, BID

REACTIONS (5)
  - DEEP VEIN THROMBOSIS [None]
  - PAIN [None]
  - INJURY [None]
  - PULMONARY EMBOLISM [None]
  - GALLBLADDER DISORDER [None]
